FAERS Safety Report 9479162 (Version 1)
Quarter: 2013Q3

REPORT INFORMATION
  Report Type: Spontaneous
  Country: US (occurrence: US)
  Receive Date: 20130827
  Receipt Date: 20130827
  Transmission Date: 20140515
  Serious: No
  Sender: FDA-Public Use
  Company Number: US-JHP PHARMACEUTICALS, LLC-JHP201300181

PATIENT
  Sex: Female

DRUGS (1)
  1. DELESTROGEN [Suspect]

REACTIONS (1)
  - Overdose [Unknown]
